FAERS Safety Report 25618526 (Version 1)
Quarter: 2025Q3

REPORT INFORMATION
  Report Type: Spontaneous
  Country: US (occurrence: US)
  Receive Date: 20250729
  Receipt Date: 20250729
  Transmission Date: 20251020
  Serious: Yes (Hospitalization, Other)
  Sender: PFIZER
  Company Number: US-PFIZER INC-202500152208

PATIENT
  Age: 29 Year
  Sex: Female

DRUGS (1)
  1. VELSIPITY [Suspect]
     Active Substance: ETRASIMOD ARGININE
     Dosage: 2 MG TABLET 1 TABLET ORALLY ONCE A DAY
     Route: 048
     Dates: start: 20250620

REACTIONS (3)
  - Dyspnoea [Unknown]
  - Inflammatory bowel disease [Unknown]
  - Rash [Unknown]
